FAERS Safety Report 6601615-2 (Version None)
Quarter: 2010Q1

REPORT INFORMATION
  Report Type: 
  Country: None (occurrence: None)
  Receive Date: 20100225
  Receipt Date: 20100222
  Transmission Date: 20100710
  Serious: Yes (Death, Hospitalization, Other)
  Sender: FDA-Public Use
  Company Number: US-CELGENEUS-163-50794-09102163

PATIENT
  Sex: Female
  Weight: 69.008 kg

DRUGS (29)
  1. VIDAZA [Suspect]
     Route: 058
     Dates: start: 20081013, end: 20081013
  2. VIDAZA [Suspect]
     Indication: CYTOGENETIC ABNORMALITY
     Route: 058
     Dates: start: 20081014, end: 20091017
  3. VIDAZA [Suspect]
     Route: 058
     Dates: start: 20081110, end: 20081114
  4. VIDAZA [Suspect]
     Route: 058
     Dates: start: 20081208, end: 20091212
  5. VIDAZA [Suspect]
     Route: 058
     Dates: start: 20090112, end: 20090115
  6. ZOFRAN [Concomitant]
     Indication: NAUSEA
     Route: 048
  7. ZOFRAN [Concomitant]
     Indication: VOMITING
  8. RED BLOOD CELLS [Concomitant]
     Indication: DRUG USE FOR UNKNOWN INDICATION
     Dosage: 2 UNITS
     Route: 051
     Dates: start: 20081015, end: 20081015
  9. RED BLOOD CELLS [Concomitant]
     Dosage: 2 UNITS
     Route: 051
     Dates: start: 20081029, end: 20081029
  10. RED BLOOD CELLS [Concomitant]
     Dosage: 1 UNITS
     Route: 051
     Dates: start: 20081111, end: 20081112
  11. RED BLOOD CELLS [Concomitant]
     Dosage: 2 UNITS
     Route: 051
     Dates: start: 20081202, end: 20081202
  12. RED BLOOD CELLS [Concomitant]
     Dosage: 2 UNITS
     Route: 051
     Dates: start: 20081215, end: 20081215
  13. RED BLOOD CELLS [Concomitant]
     Dosage: 2 UNITS
     Route: 051
     Dates: start: 20081222, end: 20081222
  14. RED BLOOD CELLS [Concomitant]
     Dosage: 2 UNITS
     Route: 051
     Dates: start: 20090113, end: 20090113
  15. RED BLOOD CELLS [Concomitant]
     Dosage: 2 UNITS
     Route: 051
     Dates: start: 20090604, end: 20090604
  16. RED BLOOD CELLS [Concomitant]
     Dosage: 2 UNITS
     Route: 051
     Dates: start: 20090622, end: 20090622
  17. LASIX [Concomitant]
     Indication: DRUG USE FOR UNKNOWN INDICATION
     Route: 051
  18. TYLENOL-500 [Concomitant]
     Indication: PREMEDICATION
     Route: 048
  19. CLARITIN [Concomitant]
     Indication: PREMEDICATION
     Route: 048
  20. PROCRIT [Concomitant]
     Indication: DRUG USE FOR UNKNOWN INDICATION
     Dosage: 40,000 UNITS
     Route: 058
  21. DESFERAL [Concomitant]
     Indication: DRUG USE FOR UNKNOWN INDICATION
     Route: 065
     Dates: start: 20081202
  22. ZOMETA [Concomitant]
     Indication: DRUG USE FOR UNKNOWN INDICATION
     Route: 051
     Dates: start: 20080926
  23. RITUXIMAB [Concomitant]
     Indication: DRUG USE FOR UNKNOWN INDICATION
     Route: 051
     Dates: start: 20081209
  24. ARANESP [Concomitant]
     Indication: DRUG USE FOR UNKNOWN INDICATION
     Route: 065
  25. DECADRON [Concomitant]
     Indication: DRUG USE FOR UNKNOWN INDICATION
     Route: 065
     Dates: start: 20081222
  26. NORMAL SALINE [Concomitant]
     Indication: DRUG USE FOR UNKNOWN INDICATION
     Route: 051
     Dates: start: 20090602
  27. EXJADE [Concomitant]
     Indication: DRUG USE FOR UNKNOWN INDICATION
     Route: 065
  28. OXYCONTIN [Concomitant]
     Indication: BONE PAIN
     Route: 065
  29. ZITHROMYCIN [Concomitant]
     Indication: BRONCHITIS
     Route: 065

REACTIONS (13)
  - ACUTE LEUKAEMIA [None]
  - BRONCHITIS [None]
  - ENTEROBACTER INFECTION [None]
  - FATIGUE [None]
  - FUNGAL TEST POSITIVE [None]
  - MYELODYSPLASTIC SYNDROME TRANSFORMATION [None]
  - NO THERAPEUTIC RESPONSE [None]
  - PANCYTOPENIA [None]
  - PERICARDITIS [None]
  - PLEURISY [None]
  - PNEUMONIA [None]
  - PYREXIA [None]
  - TRICUSPID VALVE INCOMPETENCE [None]
